FAERS Safety Report 16569193 (Version 2)
Quarter: 2020Q1

REPORT INFORMATION
  Report Type: Spontaneous
  Country: CA (occurrence: CA)
  Receive Date: 20190714
  Receipt Date: 20200325
  Transmission Date: 20200409
  Serious: Yes (Hospitalization, Disabling)
  Sender: FDA-Public Use
  Company Number: CA-SAMSUNG BIOEPIS-SB-2019-17639

PATIENT
  Age: 64 Year
  Sex: Female
  Weight: 48 kg

DRUGS (7)
  1. FOLIC ACID. [Concomitant]
     Active Substance: FOLIC ACID
     Indication: PRODUCT USED FOR UNKNOWN INDICATION
     Dosage: UNKNOWN
     Route: 065
  2. MULTIVITAMINS [VITAMINS NOS] [Concomitant]
     Active Substance: VITAMINS
     Indication: PRODUCT USED FOR UNKNOWN INDICATION
     Route: 065
  3. VITAMIN D [Concomitant]
     Active Substance: VITAMIN D NOS
     Dosage: UNKNOWN
     Route: 065
  4. INFLIXIMAB [Suspect]
     Active Substance: INFLIXIMAB
     Indication: COLITIS ULCERATIVE
     Route: 042
  5. METHYLPREDNISOLONE. [Concomitant]
     Active Substance: METHYLPREDNISOLONE
     Indication: PRODUCT USED FOR UNKNOWN INDICATION
     Route: 042
  6. VITAMIN D [Concomitant]
     Active Substance: VITAMIN D NOS
     Indication: PRODUCT USED FOR UNKNOWN INDICATION
     Dosage: UNKNOWN
     Route: 065
  7. CALCIUM [Concomitant]
     Active Substance: CALCIUM
     Indication: PRODUCT USED FOR UNKNOWN INDICATION
     Dosage: UNKNOWN
     Route: 065

REACTIONS (10)
  - Off label use [Unknown]
  - Anxiety [Unknown]
  - Incorrect dose administered [Unknown]
  - Product use issue [Unknown]
  - Blood pressure fluctuation [Unknown]
  - Blood pressure increased [Unknown]
  - Condition aggravated [Unknown]
  - Drug ineffective [Unknown]
  - Inappropriate schedule of product administration [Unknown]
  - Drug level increased [Unknown]
